FAERS Safety Report 20986088 (Version 4)
Quarter: 2025Q2

REPORT INFORMATION
  Report Type: Report from Study
  Country: CA (occurrence: CA)
  Receive Date: 20220621
  Receipt Date: 20250620
  Transmission Date: 20250716
  Serious: Yes (Other)
  Sender: TAKEDA
  Company Number: CA-TAKEDA-2022TUS037635

PATIENT
  Sex: Male

DRUGS (6)
  1. VEDOLIZUMAB [Suspect]
     Active Substance: VEDOLIZUMAB
     Indication: Colitis ulcerative
  2. VEDOLIZUMAB [Suspect]
     Active Substance: VEDOLIZUMAB
     Indication: Colitis ulcerative
     Dosage: 108 MILLIGRAM, Q2WEEKS
     Dates: start: 20220907
  3. HYDROCORTISONE [Concomitant]
     Active Substance: HYDROCORTISONE
  4. MESALAMINE [Concomitant]
     Active Substance: MESALAMINE
     Indication: Colitis ulcerative
     Dosage: UNK UNK, QD
  5. MESALAMINE [Concomitant]
     Active Substance: MESALAMINE
  6. PREDNISONE [Concomitant]
     Active Substance: PREDNISONE

REACTIONS (13)
  - Syncope [Unknown]
  - Haematochezia [Unknown]
  - Tremor [Recovering/Resolving]
  - Defaecation urgency [Recovering/Resolving]
  - Anal incontinence [Recovering/Resolving]
  - Flatulence [Recovering/Resolving]
  - Hepatic cyst [Unknown]
  - Loss of personal independence in daily activities [Unknown]
  - Hypoglycaemia [Recovered/Resolved]
  - Flank pain [Not Recovered/Not Resolved]
  - Vertigo [Unknown]
  - Dizziness [Recovered/Resolved]
  - Headache [Recovered/Resolved]
